FAERS Safety Report 20181605 (Version 1)
Quarter: 2021Q4

REPORT INFORMATION
  Report Type: Spontaneous
  Country: US (occurrence: None)
  Receive Date: 20211213
  Receipt Date: 20211213
  Transmission Date: 20220303
  Serious: No
  Sender: FDA-Public Use
  Company Number: None

PATIENT
  Age: 52 Year
  Sex: Male
  Weight: 70.65 kg

DRUGS (6)
  1. HEMORRHOIDAL COOLING GEL [Suspect]
     Active Substance: PHENYLEPHRINE HYDROCHLORIDE\WITCH HAZEL
     Indication: Haemorrhoids
     Dosage: FREQUENCY : 4 TIMES A DAY;?
     Route: 061
     Dates: start: 20211205, end: 20211210
  2. ATORVASTATIN [Concomitant]
     Active Substance: ATORVASTATIN
  3. GUANFACINE [Concomitant]
     Active Substance: GUANFACINE
  4. TADALAFIL [Concomitant]
     Active Substance: TADALAFIL
  5. HERBALS\SAW PALMETTO [Concomitant]
     Active Substance: HERBALS\SAW PALMETTO
  6. NAPROXEN [Concomitant]
     Active Substance: NAPROXEN

REACTIONS (4)
  - Palpitations [None]
  - Anxiety [None]
  - Tremor [None]
  - Abnormal behaviour [None]

NARRATIVE: CASE EVENT DATE: 20211210
